FAERS Safety Report 8303841-3 (Version None)
Quarter: 2012Q2

REPORT INFORMATION
  Report Type: 
  Country: None (occurrence: None)
  Receive Date: 20120423
  Receipt Date: 20120416
  Transmission Date: 20120825
  Serious: Yes (Hospitalization)
  Sender: FDA-Public Use
  Company Number: PHHY2011CA71167

PATIENT
  Sex: Male

DRUGS (1)
  1. ZOMETA [Suspect]
     Indication: PROSTATE CANCER
     Dosage: 4 MG, EVERY 4 WEEKS
     Route: 042
     Dates: start: 20110729

REACTIONS (9)
  - FULL BLOOD COUNT DECREASED [None]
  - CHILLS [None]
  - PAIN [None]
  - MALAISE [None]
  - PYREXIA [None]
  - INFLUENZA LIKE ILLNESS [None]
  - URINARY TRACT INFECTION [None]
  - BRONCHITIS [None]
  - NAUSEA [None]
